FAERS Safety Report 14335315 (Version 2)
Quarter: 2018Q1

REPORT INFORMATION
  Report Type: Spontaneous
  Country: DE (occurrence: DE)
  Receive Date: 20171229
  Receipt Date: 20180125
  Transmission Date: 20180509
  Serious: Yes (Other)
  Sender: FDA-Public Use
  Company Number: DE-EMD SERONO-9000101

PATIENT
  Age: 55 Year
  Sex: Female

DRUGS (4)
  1. MAVENCLAD [Suspect]
     Active Substance: CLADRIBINE
     Dosage: SECOND MAVENCLAD CYCLE TILL 15 DEC 2017
     Dates: start: 20171211
  2. MAVENCLAD [Suspect]
     Active Substance: CLADRIBINE
     Indication: PRODUCT USED FOR UNKNOWN INDICATION
     Dosage: FIRST CYCLE OF MAVENCLAD
  3. INSULIN [Concomitant]
     Active Substance: INSULIN NOS
     Indication: TYPE 1 DIABETES MELLITUS
     Dosage: DAILY
  4. MAVENCLAD [Suspect]
     Active Substance: CLADRIBINE
     Dosage: FIRST CYCLE OF MAVENCLAD TILL 17 NOV 2017
     Dates: start: 20171114

REACTIONS (4)
  - Hemiparesis [Recovering/Resolving]
  - Tachycardia [Recovering/Resolving]
  - Central nervous system lesion [Unknown]
  - Hypertension [Recovering/Resolving]

NARRATIVE: CASE EVENT DATE: 20171113
